FAERS Safety Report 5025845-9 (Version None)
Quarter: 2006Q2

REPORT INFORMATION
  Report Type: 
  Country: None (occurrence: None)
  Receive Date: 20060608
  Receipt Date: 20060608
  Transmission Date: 20061013
  Serious: No
  Sender: FDA-Public Use
  Company Number: None

PATIENT
  Age: 30 Year
  Sex: Female

DRUGS (1)
  1. ISOVUE-300 [Suspect]
     Dosage: 100 ML ONCE IV PUSH
     Route: 040
     Dates: start: 20060606, end: 20060606

REACTIONS (2)
  - ERYTHEMA [None]
  - THROAT TIGHTNESS [None]
